FAERS Safety Report 7828047-3 (Version None)
Quarter: 2011Q4

REPORT INFORMATION
  Report Type: 
  Country: None (occurrence: None)
  Receive Date: 20111020
  Receipt Date: 20110928
  Transmission Date: 20120403
  Serious: Yes (Life-Threatening)
  Sender: FDA-Public Use
  Company Number: FR-GLAXOSMITHKLINE-B0752962A

PATIENT
  Age: 45 Year
  Sex: Male

DRUGS (3)
  1. ALKERAN [Suspect]
     Indication: ACUTE MYELOID LEUKAEMIA
     Route: 065
     Dates: start: 20090321, end: 20090321
  2. BUSULFAN [Suspect]
     Indication: ACUTE MYELOID LEUKAEMIA
     Route: 065
     Dates: start: 20090317, end: 20090320
  3. NO THERAPY [Suspect]
     Indication: ACUTE MYELOID LEUKAEMIA
     Route: 065

REACTIONS (3)
  - SEPTIC SHOCK [None]
  - LUNG INFECTION [None]
  - HYPOXIC-ISCHAEMIC ENCEPHALOPATHY [None]
